FAERS Safety Report 9613585 (Version 1)
Quarter: 2013Q4

REPORT INFORMATION
  Report Type: Spontaneous
  Country: US (occurrence: US)
  Receive Date: 20131010
  Receipt Date: 20131010
  Transmission Date: 20140711
  Serious: Yes (Hospitalization, Other)
  Sender: FDA-Public Use
  Company Number: US-TEVA-437225USA

PATIENT
  Age: 70 Year
  Sex: Female

DRUGS (1)
  1. METHYLPREDNISOLONE [Suspect]
     Indication: BACK PAIN
     Route: 008

REACTIONS (3)
  - Meningitis fungal [Recovering/Resolving]
  - Product contamination microbial [Recovering/Resolving]
  - Ischaemic stroke [Recovering/Resolving]
